FAERS Safety Report 25278635 (Version 1)
Quarter: 2025Q2

REPORT INFORMATION
  Report Type: Spontaneous
  Country: US (occurrence: None)
  Receive Date: 20250506
  Receipt Date: 20250506
  Transmission Date: 20250717
  Serious: Yes (unspecified)
  Sender: FDA-CTU
  Company Number: None

PATIENT
  Age: 59 Year
  Sex: Male
  Weight: 86.2 kg

DRUGS (7)
  1. SEMAGLUTIDE [Suspect]
     Active Substance: SEMAGLUTIDE
     Indication: Type 2 diabetes mellitus
     Route: 058
     Dates: start: 20210802, end: 20250407
  2. ASPIRIN [Concomitant]
     Active Substance: ASPIRIN
     Dates: start: 20160601
  3. venlafaxine XR 75 mg alternating 37.5 mg [Concomitant]
     Dates: start: 20230314
  4. valacyclovir 1 g daily PRN for HSV flare [Concomitant]
     Dates: start: 20240906
  5. atorvastatin 40 mg daily [Concomitant]
     Dates: start: 20250103
  6. metformin XR 2 g daily [Concomitant]
     Dates: start: 20250127
  7. DAPAGLIFLOZIN [Concomitant]
     Active Substance: DAPAGLIFLOZIN

REACTIONS (4)
  - Pancreatitis [None]
  - Lipase increased [None]
  - Blood bilirubin increased [None]
  - Blood glucose increased [None]

NARRATIVE: CASE EVENT DATE: 20250407
